FAERS Safety Report 12337313 (Version 2)
Quarter: 2016Q2

REPORT INFORMATION
  Report Type: Spontaneous
  Country: JP (occurrence: JP)
  Receive Date: 20160505
  Receipt Date: 20160516
  Transmission Date: 20160815
  Serious: Yes (Other)
  Sender: FDA-Public Use
  Company Number: JP-PFIZER INC-2016236776

PATIENT
  Sex: Female

DRUGS (1)
  1. CABASER [Suspect]
     Active Substance: CABERGOLINE
     Dosage: UNK
     Route: 048

REACTIONS (1)
  - Sudden onset of sleep [Unknown]

NARRATIVE: CASE EVENT DATE: 20160426
